FAERS Safety Report 19263818 (Version 1)
Quarter: 2021Q2

REPORT INFORMATION
  Report Type: Spontaneous
  Country: IN (occurrence: IN)
  Receive Date: 20210515
  Receipt Date: 20210515
  Transmission Date: 20210717
  Serious: Yes (Life-Threatening, Hospitalization, Other)
  Sender: FDA-Public Use
  Company Number: None

PATIENT
  Age: 31 Year
  Sex: Male
  Weight: 45 kg

DRUGS (2)
  1. BEDAQUILINE [Suspect]
     Active Substance: BEDAQUILINE
     Indication: TUBERCULOSIS
  2. BEDAQUILINE [Concomitant]
     Active Substance: BEDAQUILINE

REACTIONS (2)
  - Haemoptysis [None]
  - Tachycardia [None]

NARRATIVE: CASE EVENT DATE: 20210515
